FAERS Safety Report 5141908-1 (Version None)
Quarter: 2006Q4

REPORT INFORMATION
  Report Type: 
  Country: None (occurrence: None)
  Receive Date: 20060919
  Receipt Date: 20060601
  Transmission Date: 20070319
  Serious: No
  Sender: FDA-Public Use
  Company Number: 2006US001212

PATIENT
  Age: 78 Year
  Sex: Male

DRUGS (6)
  1. VESICARE [Suspect]
     Indication: DRUG USE FOR UNKNOWN INDICATION
     Dosage: ORAL
     Route: 048
  2. LAMICTAL [Concomitant]
  3. ZOCOR [Concomitant]
  4. FLOMAX [Concomitant]
  5. PROSCAR [Concomitant]
  6. PRILOSEC [Concomitant]

REACTIONS (2)
  - PAIN IN EXTREMITY [None]
  - SENSATION OF HEAVINESS [None]
